FAERS Safety Report 8917916 (Version 2)
Quarter: 2012Q4

REPORT INFORMATION
  Report Type: 
  Country: US (occurrence: US)
  Receive Date: 20121120
  Receipt Date: 20121207
  Transmission Date: 20130627
  Serious: Yes (Death, Other)
  Sender: FDA-Public Use
  Company Number: US-BAXTER-2012BAX023913

PATIENT
  Sex: Male

DRUGS (1)
  1. DIANEAL LOW CALCIUM [Suspect]
     Indication: PERITONEAL DIALYSIS
     Route: 033
     Dates: end: 20121104

REACTIONS (5)
  - Cardiac failure [Fatal]
  - Cardiogenic shock [Fatal]
  - Ischaemic cardiomyopathy [Fatal]
  - Coronary artery disease [Fatal]
  - Pneumonia [Unknown]
